FAERS Safety Report 5835500-0 (Version None)
Quarter: 2008Q3

REPORT INFORMATION
  Report Type: 
  Country: None (occurrence: None)
  Receive Date: 20080806
  Receipt Date: 20080729
  Transmission Date: 20090109
  Serious: Yes (Hospitalization)
  Sender: FDA-Public Use
  Company Number: US-KINGPHARMUSA00001-K200800875

PATIENT

DRUGS (7)
  1. ALTACE [Suspect]
     Indication: OEDEMA
     Dosage: UNK, UNK
     Route: 048
     Dates: start: 20080101, end: 20080401
  2. LASIX [Concomitant]
     Indication: OEDEMA PERIPHERAL
     Dosage: 375 MG, QD
     Route: 048
  3. LOVENOX [Concomitant]
  4. INIPOMP                            /01263201/ [Concomitant]
  5. TEMERIT                            /01339101/ [Concomitant]
  6. POTASSIUM CHLORIDE [Concomitant]
  7. STILNOX                            /00914901/ [Concomitant]

REACTIONS (5)
  - ABDOMINAL PAIN UPPER [None]
  - DEHYDRATION [None]
  - GASTRITIS [None]
  - HYPERKALAEMIA [None]
  - RENAL FAILURE CHRONIC [None]
